FAERS Safety Report 12427543 (Version 1)
Quarter: 2016Q2

REPORT INFORMATION
  Report Type: Spontaneous
  Country: KR (occurrence: KR)
  Receive Date: 20160602
  Receipt Date: 20160602
  Transmission Date: 20160815
  Serious: Yes (Hospitalization, Other)
  Sender: FDA-Public Use
  Company Number: KR-PAR PHARMACEUTICAL COMPANIES-2016SCPR015488

PATIENT

DRUGS (1)
  1. METRONIDAZOLE. [Suspect]
     Active Substance: METRONIDAZOLE
     Indication: COLITIS
     Dosage: 1.5 G / DAY
     Route: 065

REACTIONS (1)
  - Toxic encephalopathy [Recovered/Resolved]
